FAERS Safety Report 25818862 (Version 1)
Quarter: 2025Q3

REPORT INFORMATION
  Report Type: Spontaneous
  Country: EU (occurrence: EU)
  Receive Date: 20250918
  Receipt Date: 20250918
  Transmission Date: 20251020
  Serious: Yes (Other)
  Sender: MYLAN
  Company Number: None

PATIENT
  Age: 64 Year
  Sex: Female

DRUGS (12)
  1. PACLITAXEL [Suspect]
     Active Substance: PACLITAXEL
     Indication: Endometrial cancer metastatic
     Dates: start: 20250808, end: 20250808
  2. PACLITAXEL [Suspect]
     Active Substance: PACLITAXEL
     Route: 042
     Dates: start: 20250808, end: 20250808
  3. PACLITAXEL [Suspect]
     Active Substance: PACLITAXEL
     Route: 042
     Dates: start: 20250808, end: 20250808
  4. PACLITAXEL [Suspect]
     Active Substance: PACLITAXEL
     Dates: start: 20250808, end: 20250808
  5. CARBOPLATIN [Suspect]
     Active Substance: CARBOPLATIN
     Indication: Endometrial cancer metastatic
     Dates: start: 20250808, end: 20250808
  6. CARBOPLATIN [Suspect]
     Active Substance: CARBOPLATIN
     Route: 042
     Dates: start: 20250808, end: 20250808
  7. CARBOPLATIN [Suspect]
     Active Substance: CARBOPLATIN
     Route: 042
     Dates: start: 20250808, end: 20250808
  8. CARBOPLATIN [Suspect]
     Active Substance: CARBOPLATIN
     Dates: start: 20250808, end: 20250808
  9. JEMPERLI [Suspect]
     Active Substance: DOSTARLIMAB-GXLY
     Indication: Endometrial cancer metastatic
     Dates: start: 20250808, end: 20250808
  10. JEMPERLI [Suspect]
     Active Substance: DOSTARLIMAB-GXLY
     Route: 042
     Dates: start: 20250808, end: 20250808
  11. JEMPERLI [Suspect]
     Active Substance: DOSTARLIMAB-GXLY
     Route: 042
     Dates: start: 20250808, end: 20250808
  12. JEMPERLI [Suspect]
     Active Substance: DOSTARLIMAB-GXLY
     Dates: start: 20250808, end: 20250808

REACTIONS (2)
  - Toxic skin eruption [Recovered/Resolved]
  - Erythema [Recovered/Resolved]

NARRATIVE: CASE EVENT DATE: 20250809
